FAERS Safety Report 18177510 (Version 2)
Quarter: 2025Q2

REPORT INFORMATION
  Report Type: Spontaneous
  Country: US (occurrence: US)
  Receive Date: 20200821
  Receipt Date: 20250427
  Transmission Date: 20250717
  Serious: Yes (Other)
  Sender: AUROBINDO
  Company Number: US-AUROBINDO-AUR-APL-2012-05602

PATIENT
  Age: 62 Year
  Sex: Female

DRUGS (2)
  1. PAROXETINE [Suspect]
     Active Substance: PAROXETINE
     Indication: Anxiety
     Route: 065
  2. ZOLPIDEM [Suspect]
     Active Substance: ZOLPIDEM TARTRATE
     Indication: Insomnia
     Route: 065

REACTIONS (10)
  - Homicide [Unknown]
  - Extra dose administered [Unknown]
  - Suicide attempt [Unknown]
  - Amnesia [Unknown]
  - Delirium [Unknown]
  - Disorientation [Unknown]
  - Consciousness fluctuating [Unknown]
  - Cognitive disorder [Unknown]
  - Drug ineffective [Unknown]
  - Drug interaction [Unknown]
